FAERS Safety Report 7353536-8 (Version None)
Quarter: 2011Q1

REPORT INFORMATION
  Report Type: 
  Country: None (occurrence: None)
  Receive Date: 20110315
  Receipt Date: 20110303
  Transmission Date: 20110831
  Serious: Yes (Hospitalization, Other)
  Sender: FDA-Public Use
  Company Number: US-ELI_LILLY_AND_COMPANY-US201101004184

PATIENT
  Sex: Female

DRUGS (10)
  1. KLONOPIN [Concomitant]
  2. MULTI-VITAMIN [Concomitant]
  3. PAXIL [Concomitant]
  4. FORTEO [Suspect]
     Indication: OSTEOPOROSIS
     Dosage: 20 UG, DAILY (1/D)
     Route: 058
     Dates: start: 20101026
  5. VITAMIN B-12 [Concomitant]
  6. GLUCOSAMINE [Concomitant]
  7. PEPCID [Concomitant]
  8. LAXATIVE [Concomitant]
  9. LORA TAB [Concomitant]
  10. FORTEO [Suspect]
     Dosage: 20 UG, DAILY (1/D)
     Route: 058

REACTIONS (2)
  - HIP FRACTURE [None]
  - FALL [None]
